FAERS Safety Report 6523175-7 (Version None)
Quarter: 2009Q4

REPORT INFORMATION
  Report Type: 
  Country: None (occurrence: None)
  Receive Date: 20091222
  Receipt Date: 20091208
  Transmission Date: 20100525
  Serious: Yes (Death, Life-Threatening, Other)
  Sender: FDA-Public Use
  Company Number: CLOF-1000756

PATIENT
  Age: 75 Year
  Sex: Female

DRUGS (20)
  1. EVOLTRA (CLOFARABINE) SOLUTION FOR INFUSION [Suspect]
     Indication: ACUTE MYELOID LEUKAEMIA
     Dosage: 35 MG, QDX5; INTRAVENOUS
     Route: 042
     Dates: start: 20091014, end: 20091018
  2. DAUNORUBICIN HCL [Suspect]
     Indication: ACUTE MYELOID LEUKAEMIA
     Dosage: 90 MG, QOD; INTRAVENOUS
     Route: 042
     Dates: start: 20091014, end: 20091018
  3. MYLOTARG [Suspect]
     Indication: ACUTE MYELOID LEUKAEMIA
     Dosage: 5.3 MG, ONCE; INTRAVENOUS
     Route: 042
     Dates: start: 20091014, end: 20091014
  4. DALTEPARIN SODIUM [Concomitant]
  5. METFORMIN HCL [Concomitant]
  6. DOXAZOSIN MESYLATE [Concomitant]
  7. VALSARTAN [Concomitant]
  8. BENDROFLUMETHIAZIDE (BENDROFLUMETHIAZIDE) [Concomitant]
  9. ASPIRIN (SALICYLAMIDE) [Concomitant]
  10. CHLORHEXIDINE (CHLORHEXIDINE GLUCONATE) [Concomitant]
  11. DIFFLAM MOUTH (BENZYDAMINE HYDROCHLORIDE, CETYLPYRIDINIUM CHLORIDE) [Concomitant]
  12. ANUSOL (ZINC SULFATE) [Concomitant]
  13. METOCLOPRAMIDE [Concomitant]
  14. ONDANSETRON [Concomitant]
  15. PIPERACILLIN SODIUM AND TAZOBACTAM SODIUM [Concomitant]
  16. METRONIDAZOLE [Concomitant]
  17. ITRACONAZOLE [Concomitant]
  18. ACYCLOVIR [Concomitant]
  19. CLOTRIMAZOLE [Concomitant]
  20. ALLOPURINOL [Concomitant]

REACTIONS (14)
  - BLOOD PHOSPHORUS INCREASED [None]
  - CONTINUOUS HAEMODIAFILTRATION [None]
  - DIARRHOEA [None]
  - FLUID OVERLOAD [None]
  - HAEMATOCRIT DECREASED [None]
  - HAEMOGLOBIN DECREASED [None]
  - METABOLIC ACIDOSIS [None]
  - NEUTROPENIA [None]
  - NEUTROPENIC SEPSIS [None]
  - PLATELET COUNT DECREASED [None]
  - RENAL FAILURE [None]
  - SEPTIC SHOCK [None]
  - TUMOUR LYSIS SYNDROME [None]
  - WHITE BLOOD CELL COUNT DECREASED [None]
